FAERS Safety Report 4312768-3 (Version None)
Quarter: 2004Q1

REPORT INFORMATION
  Report Type: 
  Country: None (occurrence: None)
  Receive Date: 20040304
  Receipt Date: 20040226
  Transmission Date: 20041129
  Serious: Yes (Death)
  Sender: FDA-Public Use
  Company Number: HQWYE403426FEB04

PATIENT
  Age: 64 Year
  Sex: Male

DRUGS (5)
  1. EFFEXOR XR [Suspect]
     Indication: MAJOR DEPRESSION
     Dosage: ORAL
     Route: 048
     Dates: start: 20031027
  2. ACETAMINOPHEN [Concomitant]
  3. NAPROXEN [Concomitant]
  4. CALCITONIN (CALCITONIN) [Concomitant]
  5. DEXTROPROPOXIFEN (DEXTROPROPOXYPHENE) [Concomitant]

REACTIONS (2)
  - HYPOVOLAEMIC SHOCK [None]
  - UPPER GASTROINTESTINAL HAEMORRHAGE [None]
